FAERS Safety Report 25462492 (Version 2)
Quarter: 2025Q2

REPORT INFORMATION
  Report Type: Spontaneous
  Country: US (occurrence: US)
  Receive Date: 20250620
  Receipt Date: 20250624
  Transmission Date: 20250717
  Serious: Yes (Hospitalization)
  Sender: PFIZER
  Company Number: US-PFIZER INC-PV202500072335

PATIENT
  Age: 17 Year
  Sex: Female
  Weight: 43.3 kg

DRUGS (18)
  1. LORAZEPAM [Suspect]
     Active Substance: LORAZEPAM
     Indication: Catatonia
     Dosage: 1 MG, 4X/DAY
     Dates: start: 20240627
  2. LORAZEPAM [Suspect]
     Active Substance: LORAZEPAM
     Dosage: 1.5 MG, 4X/DAY
     Dates: start: 202408
  3. LORAZEPAM [Suspect]
     Active Substance: LORAZEPAM
     Dosage: 2 MG, 4X/DAY
     Dates: start: 202408
  4. LORAZEPAM [Suspect]
     Active Substance: LORAZEPAM
     Dosage: 0.25 MG EACH MORNING
     Dates: start: 202410
  5. LORAZEPAM [Suspect]
     Active Substance: LORAZEPAM
     Dosage: 0.50 MG AT BEDTIME
     Dates: start: 202410
  6. LORAZEPAM [Suspect]
     Active Substance: LORAZEPAM
     Indication: Catatonia
     Dosage: 1 MG/KG ORALLY TWICE DAILY, WHICH WAS TITRATED TO THREE TIMES DAILY
     Route: 048
     Dates: start: 202406
  7. LORAZEPAM [Suspect]
     Active Substance: LORAZEPAM
     Dosage: 2.5 MG, 1X/DAY, ORALLY IN DIVIDED DOSES
     Route: 048
     Dates: start: 20240612
  8. LORAZEPAM [Suspect]
     Active Substance: LORAZEPAM
     Dosage: 0.5 MG, 1X/DAY, ORALLY IN DIVIDED DOSES
     Route: 048
     Dates: start: 20240616
  9. LORAZEPAM [Suspect]
     Active Substance: LORAZEPAM
     Dosage: 1 MG, 2X/DAY
     Dates: start: 20240621
  10. LORAZEPAM [Suspect]
     Active Substance: LORAZEPAM
     Dosage: 1.5 MG, 4X/DAY
     Dates: start: 202406
  11. FLUOXETINE [Concomitant]
     Active Substance: FLUOXETINE HYDROCHLORIDE
     Indication: Depression
     Route: 048
     Dates: start: 202406
  12. FLUOXETINE [Concomitant]
     Active Substance: FLUOXETINE HYDROCHLORIDE
     Indication: Anxiety
     Dosage: 10 MG, DAILY
     Dates: start: 20240612
  13. FLUOXETINE [Concomitant]
     Active Substance: FLUOXETINE HYDROCHLORIDE
     Dates: start: 202408
  14. FLUOXETINE [Concomitant]
     Active Substance: FLUOXETINE HYDROCHLORIDE
     Dates: start: 202409
  15. OLANZAPINE [Concomitant]
     Active Substance: OLANZAPINE
     Indication: Psychotic disorder
     Dosage: 1.25 MG AT BEDTIME
     Dates: start: 202409
  16. MELATONIN [Concomitant]
     Active Substance: MELATONIN
     Indication: Insomnia
     Dates: start: 202409
  17. ARIPIPRAZOLE [Concomitant]
     Active Substance: ARIPIPRAZOLE
     Indication: Psychotic disorder
     Dosage: 2 MG, DAILY
     Dates: start: 202409
  18. ARIPIPRAZOLE [Concomitant]
     Active Substance: ARIPIPRAZOLE
     Dosage: 4 MG, DAILY
     Dates: start: 202409

REACTIONS (3)
  - Drug ineffective [Unknown]
  - Off label use [Unknown]
  - Off label use [Unknown]

NARRATIVE: CASE EVENT DATE: 20240101
